FAERS Safety Report 23055651 (Version 14)
Quarter: 2025Q3

REPORT INFORMATION
  Report Type: Report from Study
  Country: CA (occurrence: CA)
  Receive Date: 20231011
  Receipt Date: 20250825
  Transmission Date: 20251020
  Serious: Yes (Hospitalization, Other)
  Sender: BIOCON
  Company Number: CA-MYLANLABS-2023M1039312

PATIENT

DRUGS (2)
  1. HULIO [Suspect]
     Active Substance: ADALIMUMAB-FKJP
     Indication: Crohn^s disease
     Dosage: 40 MILLIGRAM, Q2W
     Route: 058
     Dates: start: 20230308
  2. TYLENOL [Concomitant]
     Active Substance: ACETAMINOPHEN
     Indication: Product used for unknown indication
     Route: 065

REACTIONS (36)
  - Tonsillar hypertrophy [Not Recovered/Not Resolved]
  - Syncope [Unknown]
  - Pneumonia [Unknown]
  - Haematochezia [Unknown]
  - Rectal haemorrhage [Unknown]
  - Pharyngeal haemorrhage [Unknown]
  - Hypoacusis [Unknown]
  - Asthenia [Unknown]
  - Musculoskeletal chest pain [Unknown]
  - Menstruation irregular [Recovered/Resolved]
  - Pityriasis rosea [Unknown]
  - Chromaturia [Unknown]
  - Gingival bleeding [Unknown]
  - Tonsillar erythema [Recovering/Resolving]
  - Tonsillolith [Unknown]
  - Throat lesion [Unknown]
  - Illness [Unknown]
  - Decreased immune responsiveness [Unknown]
  - Salt craving [Unknown]
  - Increased appetite [Not Recovered/Not Resolved]
  - Injection site hypersensitivity [Unknown]
  - Insomnia [Not Recovered/Not Resolved]
  - Cough [Not Recovered/Not Resolved]
  - Nausea [Unknown]
  - Injection site pruritus [Recovering/Resolving]
  - Abscess [Unknown]
  - Injection site erythema [Recovering/Resolving]
  - Diarrhoea [Not Recovered/Not Resolved]
  - Haematuria [Unknown]
  - Injection site swelling [Recovering/Resolving]
  - Abdominal pain upper [Unknown]
  - Sinusitis [Unknown]
  - Rash [Unknown]
  - Tonsillitis [Unknown]
  - Headache [Unknown]
  - Upper respiratory tract infection [Unknown]
